FAERS Safety Report 5958652-0 (Version None)
Quarter: 2008Q4

REPORT INFORMATION
  Report Type: 
  Country: None (occurrence: None)
  Receive Date: 20081119
  Receipt Date: 20081107
  Transmission Date: 20090506
  Serious: Yes (Other)
  Sender: FDA-Public Use
  Company Number: ZA-PFIZER INC-2008094049

PATIENT
  Sex: Male
  Weight: 70 kg

DRUGS (1)
  1. ASPAVOR [Suspect]
     Indication: BLOOD CHOLESTEROL INCREASED
     Route: 048
     Dates: start: 20071130, end: 20080708

REACTIONS (8)
  - CHOLELITHIASIS [None]
  - DIVERTICULUM [None]
  - DRUG HYPERSENSITIVITY [None]
  - HEPATIC CYST [None]
  - HEPATITIS [None]
  - JAUNDICE [None]
  - PROSTATOMEGALY [None]
  - SERUM FERRITIN INCREASED [None]
